FAERS Safety Report 4284994-3 (Version None)
Quarter: 2004Q1

REPORT INFORMATION
  Report Type: 
  Country: None (occurrence: None)
  Receive Date: 20040203
  Receipt Date: 20040203
  Transmission Date: 20041129
  Serious: Yes (Other)
  Sender: FDA-Public Use
  Company Number: None

PATIENT
  Age: 70 Year
  Sex: Female
  Weight: 61.6892 kg

DRUGS (14)
  1. DIOVAN [Suspect]
     Indication: HYPERTENSION
     Dosage: 160 MG DAILY ORAL
     Route: 048
     Dates: start: 20010420, end: 20010605
  2. TEVETEN [Concomitant]
  3. SYNTHROID [Concomitant]
  4. GEMFIBROSIL [Concomitant]
  5. LENOXIN [Concomitant]
  6. GLUCOSAMINE [Concomitant]
  7. CHONDROITIN [Concomitant]
  8. GINKGO BILOBA [Concomitant]
  9. ASPIRIN [Concomitant]
  10. DOXYCYCLINE [Concomitant]
  11. ASPIRIN [Concomitant]
  12. IBUPROFEN [Concomitant]
  13. PEPCID [Concomitant]
  14. FOSAMAX [Concomitant]

REACTIONS (10)
  - ARTHRALGIA [None]
  - BURSITIS [None]
  - CARPAL TUNNEL SYNDROME [None]
  - CONDITION AGGRAVATED [None]
  - FATIGUE [None]
  - JOINT SWELLING [None]
  - NEUROPATHY PERIPHERAL [None]
  - PAIN IN EXTREMITY [None]
  - PERONEAL NERVE PALSY [None]
  - TENDERNESS [None]
